FAERS Safety Report 24715034 (Version 2)
Quarter: 2024Q4

REPORT INFORMATION
  Report Type: Spontaneous
  Country: US (occurrence: US)
  Receive Date: 20241210
  Receipt Date: 20241224
  Transmission Date: 20250115
  Serious: Yes (Other)
  Sender: BLUEPRINT MEDICINES
  Company Number: US-Blueprint Medicines Corporation-5539

PATIENT
  Age: 63 Year
  Sex: Male

DRUGS (2)
  1. AYVAKIT [Suspect]
     Active Substance: AVAPRITINIB
     Indication: Mastocytoma
     Route: 065
     Dates: start: 20240926
  2. MESALAMINE [Concomitant]
     Active Substance: MESALAMINE
     Indication: Product used for unknown indication
     Route: 065

REACTIONS (12)
  - Colitis ulcerative [Unknown]
  - Dry eye [Unknown]
  - Epistaxis [Unknown]
  - Nausea [Unknown]
  - Concomitant drug effect decreased [Unknown]
  - Diarrhoea [Unknown]
  - Brain fog [Unknown]
  - Lacrimation increased [Unknown]
  - Periorbital swelling [Unknown]
  - Eyelid margin crusting [Unknown]
  - Gastrooesophageal reflux disease [Unknown]
  - Off label use [Unknown]

NARRATIVE: CASE EVENT DATE: 20241101
